FAERS Safety Report 20553517 (Version 1)
Quarter: 2022Q1

REPORT INFORMATION
  Report Type: Spontaneous
  Country: CN (occurrence: CN)
  Receive Date: 20220304
  Receipt Date: 20220304
  Transmission Date: 20220424
  Serious: Yes (Life-Threatening, Other)
  Sender: FDA-Public Use
  Company Number: CN-SA-SAC20220303001288

PATIENT
  Age: 44 Year
  Sex: Female
  Weight: 68 kg

DRUGS (7)
  1. DOCETAXEL [Suspect]
     Active Substance: DOCETAXEL
     Indication: Breast cancer
     Dosage: 130 MG, TOTAL
     Route: 041
     Dates: start: 20220208, end: 20220208
  2. CARBOPLATIN [Suspect]
     Active Substance: CARBOPLATIN
     Indication: Breast cancer
     Dosage: 770 MG, TOTAL
     Route: 041
     Dates: start: 20220208, end: 20220208
  3. TRASTUZUMAB [Suspect]
     Active Substance: TRASTUZUMAB
     Indication: Breast cancer
     Dosage: 440 MG, TOTAL
     Route: 041
     Dates: start: 20220208, end: 20220208
  4. PERTUZUMAB [Suspect]
     Active Substance: PERTUZUMAB
     Indication: Breast cancer
     Route: 041
     Dates: start: 20220208, end: 20220208
  5. SODIUM CHLORIDE [Concomitant]
     Active Substance: SODIUM CHLORIDE
     Dosage: 500 ML, TOTAL
     Route: 041
     Dates: start: 20220208, end: 20220208
  6. SODIUM CHLORIDE [Concomitant]
     Active Substance: SODIUM CHLORIDE
     Dosage: 250 ML, TOTAL
     Route: 041
  7. DEXTROSE [Concomitant]
     Active Substance: DEXTROSE
     Dosage: 500 ML, TOTAL
     Route: 041
     Dates: start: 20220208, end: 20220208

REACTIONS (1)
  - Myelosuppression [Recovering/Resolving]

NARRATIVE: CASE EVENT DATE: 20220214
